FAERS Safety Report 5494833-0 (Version None)
Quarter: 2007Q4

REPORT INFORMATION
  Report Type: 
  Country: None (occurrence: None)
  Receive Date: 20071024
  Receipt Date: 20071015
  Transmission Date: 20080405
  Serious: Yes (Other)
  Sender: FDA-Public Use
  Company Number: US-ELI_LILLY_AND_COMPANY-US200709000664

PATIENT
  Age: 14 Year
  Sex: Female
  Weight: 48.526 kg

DRUGS (2)
  1. STRATTERA [Suspect]
     Indication: ATTENTION DEFICIT/HYPERACTIVITY DISORDER
     Dosage: 80 MG, UNK
     Dates: start: 20020101
  2. STRATTERA [Suspect]
     Dosage: 100 MG, UNK
     Dates: start: 20070101

REACTIONS (3)
  - CATECHOLAMINES URINE [None]
  - METANEPHRINE URINE INCREASED [None]
  - OVERDOSE [None]
